FAERS Safety Report 7201835-2 (Version None)
Quarter: 2010Q4

REPORT INFORMATION
  Report Type: 
  Country: None (occurrence: None)
  Receive Date: 20101229
  Receipt Date: 20100701
  Transmission Date: 20110411
  Serious: Yes (Other)
  Sender: FDA-Public Use
  Company Number: US-BAYER-201012826NA

PATIENT
  Sex: Female
  Weight: 86 kg

DRUGS (3)
  1. YAZ [Suspect]
     Indication: PREMENSTRUAL SYNDROME
     Dates: start: 20070925, end: 20080121
  2. YASMIN [Suspect]
     Indication: PRODUCT USED FOR UNKNOWN INDICATION
  3. NSAID'S [Concomitant]
     Indication: JOINT INJURY
     Dates: start: 20040101

REACTIONS (6)
  - ADJUSTMENT DISORDER [None]
  - DEEP VEIN THROMBOSIS [None]
  - DEPRESSION [None]
  - LIMB DISCOMFORT [None]
  - POST THROMBOTIC SYNDROME [None]
  - THROMBOSIS [None]
